FAERS Safety Report 7142739-3 (Version None)
Quarter: 2010Q4

REPORT INFORMATION
  Report Type: 
  Country: None (occurrence: None)
  Receive Date: 20101207
  Receipt Date: 20101203
  Transmission Date: 20110411
  Serious: Yes (Death, Other)
  Sender: FDA-Public Use
  Company Number: PHHY2009US66500

PATIENT
  Sex: Female

DRUGS (4)
  1. EXJADE [Suspect]
     Indication: MYELODYSPLASTIC SYNDROME
     Dosage: 1500 MG, QD
     Route: 048
     Dates: start: 20090701
  2. EXJADE [Suspect]
     Dosage: 500 MG, UNK
  3. CITRICIL [Concomitant]
  4. COLAC [Concomitant]

REACTIONS (5)
  - ABDOMINAL DISTENSION [None]
  - ACUTE LEUKAEMIA [None]
  - DIARRHOEA [None]
  - IRRITABLE BOWEL SYNDROME [None]
  - MALIGNANT NEOPLASM PROGRESSION [None]
